FAERS Safety Report 8551380-7 (Version None)
Quarter: 2012Q3

REPORT INFORMATION
  Report Type: 
  Country: None (occurrence: None)
  Receive Date: 20120730
  Receipt Date: 20120221
  Transmission Date: 20120928
  Serious: No
  Sender: FDA-Public Use
  Company Number: US-ALLERGAN-1110217US

PATIENT
  Sex: Female

DRUGS (6)
  1. LATISSE [Suspect]
     Dosage: 2 GTT, UNK
     Route: 061
     Dates: start: 20120101
  2. OTC EYE DROPS (LIKE ARTIFICIAL TEARS) [Concomitant]
     Dosage: UNK
     Route: 047
  3. BLINK                              /00582501/ [Concomitant]
     Dosage: UNK
     Route: 047
  4. OPTIVE [Concomitant]
  5. LATISSE [Suspect]
     Indication: GROWTH OF EYELASHES
     Dosage: 1 GTT, QHS
     Route: 061
     Dates: start: 20110301, end: 20110601
  6. LUBICORT [Concomitant]
     Dosage: UNK
     Route: 047

REACTIONS (2)
  - DRUG INEFFECTIVE [None]
  - WRONG TECHNIQUE IN DRUG USAGE PROCESS [None]
